FAERS Safety Report 7944630-9 (Version None)
Quarter: 2011Q4

REPORT INFORMATION
  Report Type: 
  Country: None (occurrence: None)
  Receive Date: 20111129
  Receipt Date: 20111122
  Transmission Date: 20120403
  Serious: Yes (Other)
  Sender: FDA-Public Use
  Company Number: PL-JNJFOC-20111111259

PATIENT
  Age: 57 Year
  Sex: Female

DRUGS (30)
  1. RITUXIMAB [Suspect]
     Dosage: CYCLE 5
     Route: 065
  2. VINCRISTINE [Suspect]
     Dosage: CYCLE 4
     Route: 065
  3. DOXORUBICIN HCL [Suspect]
     Dosage: CYCLE 4
     Route: 042
  4. RITUXIMAB [Suspect]
     Dosage: CYCLE 4
     Route: 065
  5. CYCLOPHOSPHAMIDE [Suspect]
     Dosage: CYCLE 2
     Route: 065
  6. VINCRISTINE [Suspect]
     Dosage: CYCLE 6
     Route: 065
  7. DOXORUBICIN HCL [Suspect]
     Dosage: CYCLE 6
     Route: 042
  8. RITUXIMAB [Suspect]
     Indication: DIFFUSE LARGE B-CELL LYMPHOMA
     Dosage: CYCLE 6
     Route: 065
  9. CYCLOPHOSPHAMIDE [Suspect]
     Indication: DIFFUSE LARGE B-CELL LYMPHOMA
     Dosage: CYCLE 1
     Route: 065
  10. VINCRISTINE [Suspect]
     Dosage: CYCLE 1
     Route: 065
  11. PREDNISONE TAB [Suspect]
     Indication: DIFFUSE LARGE B-CELL LYMPHOMA
     Dosage: CYCLE 6
     Route: 065
  12. RITUXIMAB [Suspect]
     Dosage: CYCLE 2
     Route: 065
  13. CYCLOPHOSPHAMIDE [Suspect]
     Dosage: CYCLE 5
     Route: 065
  14. CYCLOPHOSPHAMIDE [Suspect]
     Dosage: CYCLE 3
     Route: 065
  15. VINCRISTINE [Suspect]
     Dosage: CYCLE 3
     Route: 065
  16. PREDNISONE TAB [Suspect]
     Dosage: CYCLE 5
     Route: 065
  17. PREDNISONE TAB [Suspect]
     Dosage: CYCLE 4
     Route: 065
  18. PREDNISONE TAB [Suspect]
     Dosage: CYCLE 2
     Route: 065
  19. DOXORUBICIN HCL [Suspect]
     Dosage: CYCLE 5
     Route: 042
  20. CYCLOPHOSPHAMIDE [Suspect]
     Dosage: CYCLE 4
     Route: 065
  21. VINCRISTINE [Suspect]
     Dosage: CYCLE 2
     Route: 065
  22. PREDNISONE TAB [Suspect]
     Dosage: CYCLE 3
     Route: 065
  23. PREDNISONE TAB [Suspect]
     Dosage: CYCLE 1
     Route: 065
  24. RITUXIMAB [Suspect]
     Dosage: CYCLE 1
     Route: 065
  25. DOXORUBICIN HCL [Suspect]
     Indication: DIFFUSE LARGE B-CELL LYMPHOMA
     Dosage: CYCLE 1
     Route: 042
  26. DOXORUBICIN HCL [Suspect]
     Dosage: CYCLE 2
     Route: 042
  27. DOXORUBICIN HCL [Suspect]
     Dosage: CYCLE 3
     Route: 042
  28. RITUXIMAB [Suspect]
     Dosage: CYCLE 3
     Route: 065
  29. CYCLOPHOSPHAMIDE [Suspect]
     Dosage: CYCLE 6
     Route: 065
  30. VINCRISTINE [Suspect]
     Indication: DIFFUSE LARGE B-CELL LYMPHOMA
     Dosage: CYCLE 5
     Route: 065

REACTIONS (1)
  - INTERSTITIAL LUNG DISEASE [None]
